FAERS Safety Report 7556619-2 (Version None)
Quarter: 2011Q2

REPORT INFORMATION
  Report Type: 
  Country: None (occurrence: None)
  Receive Date: 20110620
  Receipt Date: 20110606
  Transmission Date: 20111010
  Serious: Yes (Life-Threatening, Hospitalization)
  Sender: FDA-Public Use
  Company Number: FR-SANOFI-AVENTIS-2011SA036046

PATIENT
  Age: 56 Year
  Sex: Male

DRUGS (11)
  1. FENOFIBRATE [Suspect]
     Indication: HYPERTRIGLYCERIDAEMIA
     Route: 048
  2. JANUVIA [Suspect]
     Route: 048
     Dates: start: 20091001
  3. BISOPROLOL FUMARATE [Suspect]
     Route: 048
     Dates: start: 20091201
  4. ACTOS [Suspect]
     Route: 048
     Dates: start: 20060301, end: 20100201
  5. DIAMICRON [Suspect]
     Route: 048
  6. ASPIRIN [Suspect]
     Route: 048
     Dates: start: 20091201
  7. PRAZOSIN HCL [Suspect]
     Route: 048
     Dates: end: 20100201
  8. ALLOPURINOL [Suspect]
     Indication: HYPERURICAEMIA
     Route: 048
  9. MINIRIN [Suspect]
     Indication: DIABETES INSIPIDUS
     Route: 048
     Dates: start: 19950101
  10. PERINDOPRIL ERBUMINE [Suspect]
     Route: 048
     Dates: start: 20091201
  11. KAYEXALATE [Suspect]
     Indication: HYPERKALAEMIA
     Route: 048
     Dates: start: 20100501

REACTIONS (1)
  - BLADDER CANCER [None]
